FAERS Safety Report 10999077 (Version 4)
Quarter: 2015Q4

REPORT INFORMATION
  Report Type: Spontaneous
  Country: US (occurrence: US)
  Receive Date: 20150408
  Receipt Date: 20151208
  Transmission Date: 20160304
  Serious: Yes (Hospitalization)
  Sender: FDA-Public Use
  Company Number: US-BAYER-2015-091060

PATIENT
  Age: 22 Year
  Sex: Female
  Weight: 51 kg

DRUGS (2)
  1. PARAGARD T 380A [Concomitant]
     Active Substance: COPPER
     Indication: CONTRACEPTION
  2. MIRENA [Suspect]
     Active Substance: LEVONORGESTREL
     Indication: CONTRACEPTION
     Dosage: 20 MCG/24HR, CONT
     Route: 015
     Dates: start: 20111017, end: 20130418

REACTIONS (13)
  - Uterine hypotonus [None]
  - Depression [Not Recovered/Not Resolved]
  - Device difficult to use [None]
  - Anxiety [None]
  - Maternal exposure before pregnancy [None]
  - Injury [None]
  - Pain [None]
  - Uterine perforation [None]
  - Pregnancy [None]
  - Anhedonia [None]
  - Device issue [None]
  - Premature labour [None]
  - Emotional distress [None]

NARRATIVE: CASE EVENT DATE: 2013
